FAERS Safety Report 20157420 (Version 3)
Quarter: 2022Q1

REPORT INFORMATION
  Report Type: Spontaneous
  Country: US (occurrence: US)
  Receive Date: 20211207
  Receipt Date: 20220110
  Transmission Date: 20220424
  Serious: Yes (Other)
  Sender: FDA-Public Use
  Company Number: US-ORGANON-O2112USA000481

PATIENT
  Age: 35 Year
  Sex: Female
  Weight: 95.692 kg

DRUGS (2)
  1. NEXPLANON [Suspect]
     Active Substance: ETONOGESTREL
     Dosage: 68 MILLIGRAM IN LEFT UPPER ARM
     Route: 059
     Dates: start: 20211109, end: 20211113
  2. NEXPLANON [Concomitant]
     Active Substance: ETONOGESTREL
     Dosage: 1 IMPLANT IN LEFT UPPER ARM
     Route: 059
     Dates: start: 20181109, end: 20211109

REACTIONS (5)
  - Device expulsion [Recovered/Resolved]
  - Implant site cellulitis [Unknown]
  - Implant site discharge [Unknown]
  - Implant site erythema [Unknown]
  - Wrong technique in product usage process [Unknown]

NARRATIVE: CASE EVENT DATE: 20211101
